FAERS Safety Report 6069760-0 (Version None)
Quarter: 2009Q1

REPORT INFORMATION
  Report Type: 
  Country: None (occurrence: None)
  Receive Date: 20090209
  Receipt Date: 20090129
  Transmission Date: 20090719
  Serious: Yes (Other)
  Sender: FDA-Public Use
  Company Number: US-PFIZER INC-2007086085

PATIENT
  Sex: Female
  Weight: 79.365 kg

DRUGS (5)
  1. LIPITOR [Suspect]
     Indication: BLOOD CHOLESTEROL INCREASED
     Dosage: 10 MG, 1X/DAY
  2. CELEBREX [Concomitant]
  3. TOPAMAX [Concomitant]
     Indication: TREMOR
  4. ASCOFER [Concomitant]
  5. CHLORAZEPAM [Concomitant]

REACTIONS (4)
  - ARTHRITIS [None]
  - DIARRHOEA [None]
  - INTRACRANIAL ANEURYSM [None]
  - TREMOR [None]
